FAERS Safety Report 10017588 (Version 2)
Quarter: 2014Q1

REPORT INFORMATION
  Report Type: Spontaneous
  Country: US (occurrence: US)
  Receive Date: 20140318
  Receipt Date: 20140318
  Transmission Date: 20141002
  Serious: No
  Sender: FDA-Public Use
  Company Number: US-BRISTOL-MYERS SQUIBB COMPANY-17369349

PATIENT
  Age: 36 Year
  Sex: Male

DRUGS (4)
  1. ERBITUX SOLN FOR INF [Suspect]
     Indication: COLORECTAL CANCER METASTATIC
     Dosage: 300MG/100ML:LOT#C1200248,EXPDTOCT15?100MG/50ML:LOT#IMF348,JUL15
     Route: 042
     Dates: start: 20121227
  2. IRINOTECAN HCL [Concomitant]
     Route: 042
     Dates: start: 20130214
  3. DEXAMETHASONE [Concomitant]
     Route: 042
  4. DIPHENHYDRAMINE HCL [Concomitant]
     Route: 042

REACTIONS (1)
  - Rash [Recovered/Resolved]
